FAERS Safety Report 23799992 (Version 1)
Quarter: 2024Q2

REPORT INFORMATION
  Report Type: Spontaneous
  Country: GB (occurrence: GB)
  Receive Date: 20240430
  Receipt Date: 20240430
  Transmission Date: 20240716
  Serious: Yes (Other)
  Sender: FDA-Public Use
  Company Number: None

PATIENT
  Age: 78 Year
  Sex: Male

DRUGS (24)
  1. RANOLAZINE [Suspect]
     Active Substance: RANOLAZINE
     Route: 065
  2. AVEENO [Concomitant]
     Active Substance: DIMETHICONE\HOMOSALATE\OCTINOXATE\OCTISALATE\TITANIUM DIOXIDE
     Dosage: TIME INTERVAL: AS NECESSARY
  3. BECLOMETHASONE DIPROPIONATE\FORMOTEROL FUMARATE\GLYCOPYRROLATE [Concomitant]
     Active Substance: BECLOMETHASONE DIPROPIONATE\FORMOTEROL FUMARATE\GLYCOPYRROLATE
     Dosage: 172/5/9 MICROGRAMS/DOSE INHALER
     Route: 055
  4. DERMOL [Concomitant]
     Active Substance: BENZALKONIUM CHLORIDE\CHLORHEXIDINE HYDROCHLORIDE\ISOPROPYL MYRISTATE\PARAFFIN
     Dosage: SHOWER EMOLLIENT
  5. LEVOTHYROXINE [Concomitant]
     Active Substance: LEVOTHYROXINE\LEVOTHYROXINE SODIUM
     Dosage: MORNING - 100UG AND 25UG TABLET
  6. IPRATROPIUM BROMIDE [Concomitant]
     Active Substance: IPRATROPIUM BROMIDE\IPRATROPIUM BROMIDE ANHYDROUS
     Dosage: /2ML
  7. LORAZEPAM [Concomitant]
     Active Substance: LORAZEPAM
     Dosage: TIME INTERVAL: AS NECESSARY
  8. SODIUM CHLORIDE [Concomitant]
     Active Substance: SODIUM CHLORIDE
     Dosage: TIME INTERVAL: AS NECESSARY: NEBULES QDS, SOLUTION 0.9%
  9. APIXABAN [Concomitant]
     Active Substance: APIXABAN
  10. CARBOCYSTEINE [Concomitant]
     Active Substance: CARBOCYSTEINE
     Dosage: TIME INTERVAL: 0.33333333 DAYS
  11. DOCUSATE [Concomitant]
     Active Substance: DOCUSATE
     Dosage: TIME INTERVAL: AS NECESSARY: AT NIGHT
  12. LOSARTAN [Concomitant]
     Active Substance: LOSARTAN
     Dosage: MORNING
  13. FERROUS FUMARATE [Concomitant]
     Active Substance: FERROUS FUMARATE
     Dosage: AT LUNCHTIME
  14. BISOPROLOL [Concomitant]
     Active Substance: BISOPROLOL\BISOPROLOL FUMARATE
     Dosage: MORNING
  15. MOMETASONE [Concomitant]
     Active Substance: MOMETASONE
     Dosage: BOTH NOSTRILS EVERY MORNING
  16. EZETIMIBE [Concomitant]
     Active Substance: EZETIMIBE
     Dosage: MORNING
  17. METFORMIN [Concomitant]
     Active Substance: METFORMIN HYDROCHLORIDE
     Dosage: MORNING AND LUNCHTIME
  18. NITROGLYCERIN [Concomitant]
     Active Substance: NITROGLYCERIN
     Dosage: TIME INTERVAL: AS NECESSARY: /DOSE, DOSE FORM: SUBLINGUAL SPRAY
     Route: 060
  19. LANSOPRAZOLE [Concomitant]
     Active Substance: LANSOPRAZOLE
     Dosage: MORNING
  20. ISOSORBIDE MONONITRATE [Concomitant]
     Active Substance: ISOSORBIDE MONONITRATE
     Dosage: MORNING
  21. ALBUTEROL [Concomitant]
     Active Substance: ALBUTEROL
     Dosage: TIME INTERVAL: AS NECESSARY: /2.5ML 1 NEBULE QDS
  22. ALBUTEROL [Concomitant]
     Active Substance: ALBUTEROL
     Dosage: TIME INTERVAL: AS NECESSARY: PUFFS QDS
     Route: 055
  23. THEOPHYLLINE ANHYDROUS [Concomitant]
     Active Substance: THEOPHYLLINE ANHYDROUS
     Dosage: 10AM AND 10PM
  24. AZITHROMYCIN [Concomitant]
     Active Substance: AZITHROMYCIN
     Dosage: TIME INTERVAL: 0.33333333 WEEKS: EVERY MONDAY, WEDNESDAY AND FRIDAY

REACTIONS (3)
  - Oedema peripheral [Recovered/Resolved]
  - Feeling abnormal [Unknown]
  - Joint swelling [Unknown]
